FAERS Safety Report 17734682 (Version 1)
Quarter: 2020Q2

REPORT INFORMATION
  Report Type: Spontaneous
  Country: DE (occurrence: DE)
  Receive Date: 20200501
  Receipt Date: 20200501
  Transmission Date: 20200714
  Serious: Yes (Hospitalization, Other)
  Sender: FDA-Public Use
  Company Number: DE-TEVA-2020-DE-1228272

PATIENT
  Age: 87 Year
  Sex: Male
  Weight: 80 kg

DRUGS (14)
  1. ACETYLSALICYLSAURE [Suspect]
     Active Substance: ASPIRIN
     Dosage: 100 MILLIGRAM DAILY;  0-0-1-0
  2. RAMIPRIL. [Concomitant]
     Active Substance: RAMIPRIL
     Dosage: 5 MG, 1-0-0.5-0, UNIT DOSE: 1.5 MG
  3. COLECALCIFEROL (VITAMIN D) [Concomitant]
     Dosage: 1000 IU (INTERNATIONAL UNIT) DAILY; 1-0-0-0
  4. APIDRA [Concomitant]
     Active Substance: INSULIN GLULISINE
     Dosage: 100 IE, 6-0-0-0, UNIT DOSE: 600 IU
     Route: 058
  5. LANTUS 100EINHEITEN/ML INJEKTIONSLOSUNG 10ML [Concomitant]
     Dosage: 100 IE, 12-0-0-0, UNIT DOSE: 1200 IU
     Route: 058
  6. CLOPIDOGREL [Suspect]
     Active Substance: CLOPIDOGREL BISULFATE
     Dosage: 75 MILLIGRAM DAILY; 1-0-0-0
  7. CYANOCOBALAMIN (VITAMIN B12) [Concomitant]
     Dosage: 1 DOSAGE FORMS DAILY; 1-0-0-0
  8. SITAGLIPTIN [Concomitant]
     Active Substance: SITAGLIPTIN
     Dosage: 100 MILLIGRAM DAILY; 1-0-1-0
  9. JARDIANCE [Concomitant]
     Active Substance: EMPAGLIFLOZIN
     Dosage: 10 MILLIGRAM DAILY; 1-0-0-0
  10. FERRO SANOL 100MG (FE2+) [Suspect]
     Active Substance: FERROUS GLYCINE SULFATE
     Dosage: 100 MILLIGRAM DAILY; 1-0-0-0
  11. PANTOPRAZOL [Concomitant]
     Active Substance: PANTOPRAZOLE SODIUM
     Dosage: 40 MG, 1-0-1-0
  12. METFORMIN [Concomitant]
     Active Substance: METFORMIN HYDROCHLORIDE
     Dosage: 1000 MG, 1-0-1-0
  13. LEVOTHYROXIN-NATRIUM [Concomitant]
     Active Substance: LEVOTHYROXINE SODIUM
     Dosage: 50 MICROGRAM DAILY; 1-0-0-0
  14. SIMVASTATIN. [Concomitant]
     Active Substance: SIMVASTATIN
     Dosage: 20 MILLIGRAM DAILY; 0-0-1-0

REACTIONS (3)
  - Haematochezia [Unknown]
  - General physical health deterioration [Unknown]
  - Anaemia [Unknown]
